FAERS Safety Report 8262807-2 (Version None)
Quarter: 2012Q1

REPORT INFORMATION
  Report Type: 
  Country: None (occurrence: None)
  Receive Date: 20120327
  Receipt Date: 20081106
  Transmission Date: 20120608
  Serious: Yes (Hospitalization, Other)
  Sender: FDA-Public Use
  Company Number: PHEH2008US09980

PATIENT
  Age: 36 Year
  Sex: Male
  Weight: 76 kg

DRUGS (1)
  1. GLEEVEC [Suspect]
     Indication: CHRONIC MYELOID LEUKAEMIA
     Dosage: 400 MG, QD
     Dates: start: 20080201, end: 20081012

REACTIONS (17)
  - BLOOD CALCIUM INCREASED [None]
  - BLOOD ALBUMIN DECREASED [None]
  - SUBDURAL HAEMATOMA [None]
  - CEREBRAL HAEMORRHAGE [None]
  - HAEMOGLOBIN DECREASED [None]
  - BLAST CRISIS IN MYELOGENOUS LEUKAEMIA [None]
  - PLATELET COUNT DECREASED [None]
  - TREATMENT FAILURE [None]
  - CHEST X-RAY ABNORMAL [None]
  - HEADACHE [None]
  - BRAIN OEDEMA [None]
  - WHITE BLOOD CELL COUNT INCREASED [None]
  - BLOOD SODIUM DECREASED [None]
  - BIOPSY BONE MARROW [None]
  - HAEMATOCRIT DECREASED [None]
  - RED BLOOD CELL COUNT DECREASED [None]
  - BLOOD GLUCOSE INCREASED [None]
